FAERS Safety Report 8590753 (Version 5)
Quarter: 2014Q3

REPORT INFORMATION
  Report Type: Report from Study
  Country: MX (occurrence: MX)
  Receive Date: 20120601
  Receipt Date: 20140721
  Transmission Date: 20150326
  Serious: Yes (Death)
  Sender: FDA-Public Use
  Company Number: MX-ROCHE-1072696

PATIENT
  Age: 56 Year
  Sex: Female
  Weight: 68 kg

DRUGS (16)
  1. DOCETAXEL [Suspect]
     Active Substance: DOCETAXEL
     Indication: BREAST CANCER
     Dosage: DATE OF LAST DOSE PRIOR TO EVENT: 04MAY/2012, LAST DOSE TAKEN: 120 MG
     Route: 042
     Dates: start: 20111021
  2. GLIBENCLAMIDA [Concomitant]
     Indication: TYPE 2 DIABETES MELLITUS
  3. PREGABALIN. [Concomitant]
     Active Substance: PREGABALIN
     Indication: NEUROPATHY PERIPHERAL
     Route: 065
     Dates: start: 20111209
  4. BUTILBROMURO DE HIOSCINA [Concomitant]
     Indication: DIARRHOEA
     Route: 065
     Dates: start: 20120508, end: 20120510
  5. DEXAMETHASONE. [Concomitant]
     Active Substance: DEXAMETHASONE
     Indication: ASTHENIA
     Route: 065
     Dates: start: 20120504, end: 20120510
  6. CLOROPIRAMINA [Concomitant]
     Route: 065
     Dates: start: 20111021, end: 20120504
  7. TRASTUZUMAB [Suspect]
     Active Substance: TRASTUZUMAB
     Indication: BREAST CANCER
     Dosage: LAST DOSE TAKEN: 408 MG,LAST DOSE PRIOR TO EVENT: 04MAY/2012
     Route: 042
     Dates: start: 20111021
  8. METFORMIN [Concomitant]
     Active Substance: METFORMIN HYDROCHLORIDE
     Indication: TYPE 2 DIABETES MELLITUS
     Route: 065
  9. RANITIDINE [Concomitant]
     Active Substance: RANITIDINE\RANITIDINE HYDROCHLORIDE
     Route: 065
     Dates: start: 20120504
  10. GRANISETRON [Concomitant]
     Active Substance: GRANISETRON
     Route: 065
     Dates: start: 20111021, end: 20120504
  11. PREGABALIN. [Concomitant]
     Active Substance: PREGABALIN
     Route: 065
     Dates: start: 20111231, end: 20120518
  12. LOPERAMIDE [Concomitant]
     Active Substance: LOPERAMIDE
     Indication: DIARRHOEA
     Route: 065
     Dates: start: 20120504, end: 20120510
  13. LORATADINE. [Concomitant]
     Active Substance: LORATADINE
     Route: 065
     Dates: start: 20120504, end: 20120510
  14. RANITIDINE [Concomitant]
     Active Substance: RANITIDINE\RANITIDINE HYDROCHLORIDE
     Route: 065
     Dates: start: 20120413, end: 20120427
  15. GRANISETRON [Concomitant]
     Active Substance: GRANISETRON
     Indication: NAUSEA
     Route: 065
     Dates: start: 20120504, end: 20120510
  16. BUTILBROMURO DE HIOSCINA [Concomitant]
     Indication: GASTROINTESTINAL TOXICITY

REACTIONS (1)
  - Myocardial infarction [Fatal]

NARRATIVE: CASE EVENT DATE: 20120518
